FAERS Safety Report 7680080-0 (Version None)
Quarter: 2011Q3

REPORT INFORMATION
  Report Type: 
  Country: None (occurrence: None)
  Receive Date: 20110812
  Receipt Date: 20110802
  Transmission Date: 20111222
  Serious: Yes (Hospitalization)
  Sender: FDA-Public Use
  Company Number: AR-ROCHE-786628

PATIENT
  Age: 34 Year
  Sex: Female

DRUGS (3)
  1. HERCEPTIN [Suspect]
     Indication: BREAST CANCER
     Route: 042
     Dates: start: 20110315
  2. PACLITAXEL [Concomitant]
     Dates: start: 20110202, end: 20110601
  3. HERCEPTIN [Suspect]
     Route: 042
     Dates: start: 20110420, end: 20110601

REACTIONS (3)
  - CATARACT [None]
  - GLAUCOMA [None]
  - HYPERTENSION [None]
